FAERS Safety Report 9172673 (Version 1)
Quarter: 2012Q4

REPORT INFORMATION
  Report Type: 
  Country: NL (occurrence: NL)
  Receive Date: 20120911
  Receipt Date: 20120911
  Transmission Date: 20130627
  Serious: Yes (Death, Hospitalization)
  Sender: FDA-Public Use
  Company Number: NL-BAXTER-2012BAX016377

PATIENT
  Sex: Male

DRUGS (3)
  1. ADVATE 250 IE [Suspect]
     Indication: BLEEDING
     Route: 065
     Dates: start: 20100714
  2. ADVATE 250 IE [Suspect]
     Route: 065
  3. ADVATE 250 IE [Suspect]
     Route: 065
     Dates: start: 20120827

REACTIONS (4)
  - Subarachnoid haemorrhage [Fatal]
  - Unresponsive to stimuli [Unknown]
  - Headache [Unknown]
  - Malaise [Unknown]
